FAERS Safety Report 14963321 (Version 1)
Quarter: 2018Q2

REPORT INFORMATION
  Report Type: Report from Study
  Country: FR (occurrence: FR)
  Receive Date: 20180601
  Receipt Date: 20180601
  Transmission Date: 20180711
  Serious: Yes (Hospitalization)
  Sender: FDA-Public Use
  Company Number: FR-PFIZER INC-2018218067

PATIENT
  Age: 88 Year
  Sex: Female
  Weight: 61 kg

DRUGS (13)
  1. FLUOROURACIL. [Suspect]
     Active Substance: FLUOROURACIL
     Indication: COLORECTAL CANCER METASTATIC
     Dosage: 3000 MG, CYCLIC
     Route: 041
     Dates: start: 20151203, end: 20151203
  2. LEUCOVORIN /00566701/ [Suspect]
     Active Substance: LEUCOVORIN
     Indication: COLORECTAL CANCER METASTATIC
     Dosage: 500 MG, CYCLIC
     Route: 041
     Dates: start: 20151203, end: 20151203
  3. BISOPROLOL [Concomitant]
     Active Substance: BISOPROLOL
     Dates: start: 2015
  4. ZOPHREN /00955302/ [Concomitant]
     Active Substance: ONDANSETRON
     Dates: start: 20151203, end: 20151203
  5. AFLIBERCEPT [Suspect]
     Active Substance: AFLIBERCEPT
     Indication: COLORECTAL CANCER METASTATIC
     Dosage: 240 MG, CYCLIC
     Route: 041
     Dates: start: 20151203, end: 20151203
  6. DAFALGAN [Concomitant]
     Active Substance: ACETAMINOPHEN
     Dates: start: 2015
  7. FLUOROURACIL. [Suspect]
     Active Substance: FLUOROURACIL
     Dosage: 500 MG, CYCLIC
     Route: 040
     Dates: start: 20151203, end: 20151203
  8. AMOXICILLIN. [Concomitant]
     Active Substance: AMOXICILLIN
     Dates: start: 20151217, end: 20160107
  9. RAMIPRIL. [Concomitant]
     Active Substance: RAMIPRIL
     Dates: start: 2015
  10. LASILIX /00032601/ [Concomitant]
     Active Substance: FUROSEMIDE
     Dates: start: 2015
  11. IRINOTECAN HCL [Suspect]
     Active Substance: IRINOTECAN HYDROCHLORIDE
     Indication: COLORECTAL CANCER METASTATIC
     Dosage: 280 MG, CYCLIC
     Route: 041
     Dates: start: 20151203, end: 20151203
  12. ATROPINE /00002802/ [Concomitant]
     Active Substance: ATROPINE
     Dosage: UNK
     Dates: start: 20151203
  13. XALATAN [Concomitant]
     Active Substance: LATANOPROST
     Dates: start: 2015

REACTIONS (4)
  - Decreased appetite [Recovered/Resolved]
  - Asthenia [Recovered/Resolved]
  - Cholangitis [Recovered/Resolved]
  - Sepsis [Recovered/Resolved]

NARRATIVE: CASE EVENT DATE: 20151210
